FAERS Safety Report 8880521 (Version 1)
Quarter: 2012Q4

REPORT INFORMATION
  Report Type: 
  Country: JP (occurrence: JP)
  Receive Date: 20121031
  Receipt Date: 20121031
  Transmission Date: 20130627
  Serious: Yes (Hospitalization)
  Sender: FDA-Public Use
  Company Number: JP-ASTRAZENECA-2012SE81303

PATIENT
  Age: 60 Year
  Sex: Female

DRUGS (3)
  1. NEXIUM [Suspect]
     Route: 048
     Dates: start: 201209
  2. ANTIHYPERTENSIVES [Concomitant]
     Indication: HYPERTENSION
     Dosage: Dose unknown
     Route: 065
  3. TRICOR [Concomitant]
     Indication: HYPERLIPIDAEMIA
     Dosage: Dose unknown
     Route: 065

REACTIONS (1)
  - Pancreatitis acute [Recovered/Resolved]
